FAERS Safety Report 9135614 (Version 1)
Quarter: 2013Q1

REPORT INFORMATION
  Report Type: Spontaneous
  Country: BR (occurrence: BR)
  Receive Date: 20130304
  Receipt Date: 20130304
  Transmission Date: 20140127
  Serious: Yes (Other)
  Sender: FDA-Public Use
  Company Number: BR-PFIZER INC-2013072097

PATIENT
  Age: 73 Year
  Sex: Female

DRUGS (8)
  1. LYRICA [Suspect]
     Indication: TRIGEMINAL NEURALGIA
     Dosage: 75 MG, 1X/DAY
     Route: 048
     Dates: start: 20120123
  2. AAS [Concomitant]
     Indication: COAGULOPATHY
     Dosage: 1 TABLET DAILY
     Dates: start: 2010
  3. GABAPENTIN [Concomitant]
     Indication: TRIGEMINAL NEURALGIA
     Dosage: 5 TABLETS (STRENGTH, 300 UNSPECIFIED UNIT) DAILY
     Dates: start: 2011
  4. LOSARTAN [Concomitant]
     Indication: HYPERTENSION
     Dosage: 2 TABLETS (STRENGTH, 50 UNSPECIFIED UNIT) DAILY
     Dates: start: 2010
  5. NEBILET [Concomitant]
     Indication: HYPERTENSION
     Dosage: 1 TABLET (STRENGTH 5 UNSPECIFIED UNIT) DAILY
     Dates: start: 201301
  6. OMEPRAZOLE [Concomitant]
     Indication: GASTRIC DISORDER
     Dosage: 1TABLET (STRENGTH 20 UNSPECIFIED UNIT) DAILY
     Dates: start: 2010
  7. RIVOTRIL [Concomitant]
     Indication: RELAXATION THERAPY
     Dosage: 1 TABLET (STRENGTH 0.5 UNSPECIFIED UNIT) DAILY
     Dates: start: 2011
  8. SIMVASTATIN [Concomitant]
     Indication: BLOOD CHOLESTEROL ABNORMAL
     Dosage: 1 TABLET (STRENGTH 20 UNSPECIFIED UNIT) DAILY
     Dates: start: 2010

REACTIONS (3)
  - Dysstasia [Unknown]
  - Back pain [Not Recovered/Not Resolved]
  - Malaise [Unknown]
